FAERS Safety Report 8087460-2 (Version None)
Quarter: 2012Q1

REPORT INFORMATION
  Report Type: 
  Country: None (occurrence: None)
  Receive Date: 20120128
  Receipt Date: 20110520
  Transmission Date: 20120608
  Serious: No
  Sender: FDA-Public Use
  Company Number: US-ABBOTT-11P-163-0727999-00

PATIENT
  Sex: Female
  Weight: 52.21 kg

DRUGS (5)
  1. ASACOL [Concomitant]
     Indication: PRODUCT USED FOR UNKNOWN INDICATION
  2. CULTURELLE [Concomitant]
     Indication: PROBIOTIC THERAPY
  3. HUMIRA [Suspect]
     Indication: CROHN'S DISEASE
     Route: 058
     Dates: start: 20110201
  4. ERRIN [Concomitant]
     Indication: CONTRACEPTION
  5. CHILDREN'S MULTIVITAMIN [Concomitant]
     Indication: PRODUCT USED FOR UNKNOWN INDICATION

REACTIONS (5)
  - SCRATCH [None]
  - SWELLING [None]
  - PRURITUS [None]
  - MECHANICAL URTICARIA [None]
  - URTICARIA [None]
